FAERS Safety Report 11742373 (Version 1)
Quarter: 2015Q4

REPORT INFORMATION
  Report Type: Spontaneous
  Country: US (occurrence: None)
  Receive Date: 20151113
  Receipt Date: 20151113
  Transmission Date: 20160304
  Serious: Yes (Other)
  Sender: FDA-Public Use
  Company Number: None

PATIENT
  Sex: Male
  Weight: 97.07 kg

DRUGS (3)
  1. PRIMATENE TABLETS [Concomitant]
  2. VENTOLIN [Suspect]
     Active Substance: ALBUTEROL SULFATE
  3. XENOPIN PRO-AIR [Concomitant]

REACTIONS (2)
  - Device malfunction [None]
  - Hypertension [None]
